FAERS Safety Report 8520255-1 (Version None)
Quarter: 2012Q3

REPORT INFORMATION
  Report Type: 
  Country: None (occurrence: None)
  Receive Date: 20120712
  Receipt Date: 20120712
  Transmission Date: 20120928
  Serious: No
  Sender: FDA-Public Use
  Company Number: None

PATIENT
  Age: 63 Year
  Sex: Female

DRUGS (10)
  1. ACTIGALL [Concomitant]
  2. LASIX [Concomitant]
  3. LETAIRIS [Suspect]
     Indication: PULMONARY ARTERIAL HYPERTENSION
     Dosage: 5MG QD ORALLY
     Route: 048
     Dates: start: 20120516, end: 20120629
  4. REMODULIN [Concomitant]
  5. CIALIS [Concomitant]
  6. ZOFRAN [Concomitant]
  7. MEVACOR [Concomitant]
  8. OLTRAM [Concomitant]
  9. PROTONIX [Concomitant]
  10. FOSAMAX [Concomitant]

REACTIONS (4)
  - OEDEMA PERIPHERAL [None]
  - PAIN [None]
  - ABDOMINAL DISTENSION [None]
  - QUALITY OF LIFE DECREASED [None]
